FAERS Safety Report 18226798 (Version 2)
Quarter: 2020Q3

REPORT INFORMATION
  Report Type: Spontaneous
  Country: DE (occurrence: DE)
  Receive Date: 20200903
  Receipt Date: 20200914
  Transmission Date: 20201103
  Serious: Yes (Death, Life-Threatening, Hospitalization, Other)
  Sender: FDA-Public Use
  Company Number: DE-TEVA-2020-DE-1821960

PATIENT
  Age: 58 Year
  Sex: Female

DRUGS (32)
  1. MYCOPHENOLATE MOFETIL. [Suspect]
     Active Substance: MYCOPHENOLATE MOFETIL
     Indication: IMMUNOSUPPRESSANT DRUG THERAPY
     Route: 065
  2. TACROLIMUS. [Interacting]
     Active Substance: TACROLIMUS
     Dosage: 5 MILLIGRAM DAILY; POST?OPERATIVE DAY 29
     Route: 065
  3. TACROLIMUS. [Interacting]
     Active Substance: TACROLIMUS
     Dosage: 2 MILLIGRAM DAILY; POST?OPERATIVE DAY 43
     Route: 065
  4. LORAZEPAM. [Suspect]
     Active Substance: LORAZEPAM
     Indication: STATUS EPILEPTICUS
     Route: 065
  5. SEVOFLURANE. [Suspect]
     Active Substance: SEVOFLURANE
     Indication: STATUS EPILEPTICUS
     Dosage: VIA AN ANAESTHETIC CONSERVING DEVICE
     Route: 065
  6. TACROLIMUS. [Interacting]
     Active Substance: TACROLIMUS
     Dosage: 2 MILLIGRAM DAILY; POST?OPERATIVE DAY 41
     Route: 065
  7. AMPHOTERICIN B. [Interacting]
     Active Substance: AMPHOTERICIN B
     Indication: ANTIFUNGAL PROPHYLAXIS
  8. BASILIXIMAB [Suspect]
     Active Substance: BASILIXIMAB
     Indication: IMMUNOSUPPRESSANT DRUG THERAPY
     Dosage: FOR INDUCTION ON DAY 0 AND DAY 4
     Route: 065
  9. VANCOMYCIN [Concomitant]
     Active Substance: VANCOMYCIN
     Indication: EVIDENCE BASED TREATMENT
     Route: 065
  10. TACROLIMUS. [Interacting]
     Active Substance: TACROLIMUS
     Indication: IMMUNOSUPPRESSANT DRUG THERAPY
     Dosage: 8 MILLIGRAM DAILY; POST?OPERATIVE DAY 12, DAY 14, DAY 17, DAY 20, DAY 23
     Route: 065
  11. TACROLIMUS. [Interacting]
     Active Substance: TACROLIMUS
     Dosage: .72 MILLIGRAM DAILY; POST?OPERATIVE DAY 6
     Route: 042
  12. LEVETIRACETAM. [Suspect]
     Active Substance: LEVETIRACETAM
     Indication: STATUS EPILEPTICUS
     Route: 065
  13. AMPHOTERICIN B. [Interacting]
     Active Substance: AMPHOTERICIN B
     Indication: ANTIFUNGAL PROPHYLAXIS
     Dosage: THREE TIMES A DAY
     Route: 050
  14. PROPOFOL. [Suspect]
     Active Substance: PROPOFOL
     Indication: STATUS EPILEPTICUS
     Route: 065
  15. DOBUTAMINE [Concomitant]
     Active Substance: DOBUTAMINE HYDROCHLORIDE
     Indication: CARDIAC DISORDER
     Route: 065
  16. GANCICLOVIR. [Concomitant]
     Active Substance: GANCICLOVIR
     Indication: ANTIVIRAL PROPHYLAXIS
     Route: 065
  17. CASPOFUNGIN [Concomitant]
     Active Substance: CASPOFUNGIN
     Indication: EVIDENCE BASED TREATMENT
     Route: 065
  18. TACROLIMUS. [Interacting]
     Active Substance: TACROLIMUS
     Dosage: 2 MILLIGRAM DAILY; POST?OPERATIVE DAY 32
     Route: 065
  19. COTRIMOXAZOLE [Concomitant]
     Active Substance: SULFAMETHOXAZOLE\TRIMETHOPRIM
     Indication: ANTIBIOTIC PROPHYLAXIS
     Route: 065
  20. TACROLIMUS. [Interacting]
     Active Substance: TACROLIMUS
     Dosage: .96 MILLIGRAM DAILY; POST?OPERATIVE DAY 8
     Route: 042
  21. VALGANCICLOVIR. [Suspect]
     Active Substance: VALGANCICLOVIR
     Indication: ANTIVIRAL PROPHYLAXIS
     Route: 065
  22. LACOSAMIDE. [Suspect]
     Active Substance: LACOSAMIDE
     Indication: STATUS EPILEPTICUS
     Route: 065
  23. TACROLIMUS. [Interacting]
     Active Substance: TACROLIMUS
     Dosage: 4 MILLIGRAM DAILY; POST?OPERATIVE DAY 42
     Route: 065
  24. TACROLIMUS. [Interacting]
     Active Substance: TACROLIMUS
     Dosage: .48 MILLIGRAM DAILY; POST?OPERATIVE DAY 1 AND DAY 3
     Route: 042
  25. TACROLIMUS. [Interacting]
     Active Substance: TACROLIMUS
     Dosage: 4 MILLIGRAM DAILY; POST?OPERATIVE DAY 26 AND DAY 27
     Route: 065
  26. TACROLIMUS. [Interacting]
     Active Substance: TACROLIMUS
     Dosage: 6 MILLIGRAM DAILY; POST?OPERATIVE DAY 34 AND DAY 35
     Route: 065
  27. TACROLIMUS. [Interacting]
     Active Substance: TACROLIMUS
     Dosage: 2 MILLIGRAM DAILY; POST?OPERATIVE DAY 36
     Route: 065
  28. MIDAZOLAM. [Suspect]
     Active Substance: MIDAZOLAM
     Indication: STATUS EPILEPTICUS
     Route: 065
  29. METHYLPREDNISOLONE. [Suspect]
     Active Substance: METHYLPREDNISOLONE
     Indication: IMMUNOSUPPRESSANT DRUG THERAPY
     Route: 065
  30. PREDNISONE. [Suspect]
     Active Substance: PREDNISONE
     Indication: IMMUNOSUPPRESSANT DRUG THERAPY
     Route: 065
  31. TACROLIMUS. [Interacting]
     Active Substance: TACROLIMUS
     Dosage: 1 MILLIGRAM DAILY; POST?OPERATIVE DAY 37
     Route: 065
  32. MEROPENEM. [Concomitant]
     Active Substance: MEROPENEM
     Indication: EVIDENCE BASED TREATMENT
     Route: 065

REACTIONS (12)
  - Drug level above therapeutic [Unknown]
  - Hyperammonaemia [Unknown]
  - Posterior reversible encephalopathy syndrome [Fatal]
  - Bacterial sepsis [Fatal]
  - Status epilepticus [Unknown]
  - Ureaplasma infection [Fatal]
  - Neutropenia [Unknown]
  - Leukopenia [Unknown]
  - Coma [Unknown]
  - Brain oedema [Fatal]
  - Drug ineffective [Unknown]
  - Drug interaction [Unknown]
